FAERS Safety Report 15353921 (Version 3)
Quarter: 2019Q1

REPORT INFORMATION
  Report Type: Spontaneous
  Country: US (occurrence: US)
  Receive Date: 20180905
  Receipt Date: 20190201
  Transmission Date: 20190417
  Serious: Yes (Hospitalization, Other)
  Sender: FDA-Public Use
  Company Number: US-ASTRAZENECA-2018SF10993

PATIENT
  Age: 137 Month
  Sex: Male
  Weight: 41.3 kg

DRUGS (26)
  1. PREDNISONE. [Concomitant]
     Active Substance: PREDNISONE
     Indication: ASTHMA
     Route: 048
  2. PROAIR HFA [Concomitant]
     Active Substance: ALBUTEROL SULFATE
     Indication: WHEEZING
     Dosage: 2 PUFF INH Q4-6H
     Route: 055
  3. PREDNISONE. [Concomitant]
     Active Substance: PREDNISONE
     Indication: ASTHMA
     Dosage: 2PILLS 2X1D X5DAYS THEN 3PILLS IN AM X1D, 2.5PILLS X1D, 2PILLS X1D, 1.5PILLS X1D, 1PILL X1D, 0.5TAB
     Route: 048
  4. PROAIR HFA [Concomitant]
     Active Substance: ALBUTEROL SULFATE
     Indication: COUGH
     Dosage: 2 PUFF INH Q4-6H
     Route: 055
  5. FASENRA [Suspect]
     Active Substance: BENRALIZUMAB
     Indication: ASTHMA
     Dosage: 30.0MG/ML UNKNOWN
     Route: 058
     Dates: start: 20180605
  6. DULERA [Concomitant]
     Active Substance: FORMOTEROL FUMARATE DIHYDRATE\MOMETASONE FUROATE
     Indication: ASTHMA
     Dosage: 100 MCG/5 MCG HFA.AER.AD: 2 PUFF INH BID
     Route: 055
  7. DYMISTA [Concomitant]
     Active Substance: AZELASTINE HYDROCHLORIDE\FLUTICASONE PROPIONATE
     Dosage: 137 MEG/50 MEG SPRAY 1 SPR EN BID
  8. SPIRIVA RESPIMAT [Concomitant]
     Active Substance: TIOTROPIUM BROMIDE
     Route: 055
  9. PROAIR HFA [Concomitant]
     Active Substance: ALBUTEROL SULFATE
     Indication: ASTHMA
     Dosage: 2 PUFF INH Q4-6H
     Route: 055
  10. CLINDAMYCIN. [Concomitant]
     Active Substance: CLINDAMYCIN
     Route: 048
  11. EPIPEN [Concomitant]
     Active Substance: EPINEPHRINE
     Dosage: 0.3 MG/0.3 ML PEN.INJCTR 0.3 MG IM PRN
     Route: 030
  12. HYDROXYZINE [Concomitant]
     Active Substance: HYDROXYZINE HYDROCHLORIDE
     Indication: PRURITUS
     Dosage: 1-2 TAB PO HS
     Route: 048
  13. TRIAMCINOLONE [Concomitant]
     Active Substance: TRIAMCINOLONE
     Indication: ECZEMA
     Dosage: TP BID PRN
  14. DULERA [Concomitant]
     Active Substance: FORMOTEROL FUMARATE DIHYDRATE\MOMETASONE FUROATE
     Indication: ASTHMA
     Dosage: 200 MCG/5 MCG HFA.AER.AD 2 PUFF INH BID
     Route: 055
  15. MONTELUKAST [Concomitant]
     Active Substance: MONTELUKAST SODIUM
     Dosage: TAKE AT NIGHT. DO NOT CHEW; SWALLOW WHOLE
     Route: 048
  16. MONTELUKAST [Concomitant]
     Active Substance: MONTELUKAST SODIUM
     Dosage: SINGULAIR
  17. FAMOTIDINE. [Concomitant]
     Active Substance: FAMOTIDINE
     Dosage: 40 MG/5 ML 3 ML PO BID
     Route: 048
  18. GUANFACINE. [Concomitant]
     Active Substance: GUANFACINE
     Dosage: 1 TABLET PO QPM,
     Route: 048
  19. RITALIN [Concomitant]
     Active Substance: METHYLPHENIDATE HYDROCHLORIDE
     Route: 048
  20. OLOPATADINE HYDROCHLORIDE. [Concomitant]
     Active Substance: OLOPATADINE HYDROCHLORIDE
     Indication: EYE DISORDER
     Dosage: 1 DROP OU DAILY
  21. ALBUTEROL. [Concomitant]
     Active Substance: ALBUTEROL
     Indication: WHEEZING
     Dosage: 0.083% VIAL 1 UNIT NEB Q4H PRN
  22. PREDNISONE. [Concomitant]
     Active Substance: PREDNISONE
     Indication: ASTHMA
     Dosage: TAKE 4 TABS ON DAY 1, 3 TABS ON DAY 2, 2 TABS ON DAY 3, 1 1/2 TABS ON DAY 4, 1 TAB ON DAY 5, AND ...
     Route: 048
  23. TRAZODONE [Concomitant]
     Active Substance: TRAZODONE HYDROCHLORIDE
     Indication: INSOMNIA
     Dosage: 1-2 TABLET PO HS
     Route: 048
  24. CLARITIN [Concomitant]
     Active Substance: LORATADINE
  25. MUPIROCIN. [Concomitant]
     Active Substance: MUPIROCIN
     Dosage: 22 GM OINT TP TID,
     Route: 061
  26. METHYLPHENIDATE. [Concomitant]
     Active Substance: METHYLPHENIDATE
     Route: 048

REACTIONS (16)
  - Ocular hyperaemia [Unknown]
  - Nasal congestion [Unknown]
  - Snoring [Unknown]
  - Sleep disorder [Unknown]
  - Eye oedema [Unknown]
  - Rhinorrhoea [Unknown]
  - Epistaxis [Unknown]
  - Product dose omission [Unknown]
  - Asthma [Recovered/Resolved]
  - Hypersensitivity [Unknown]
  - Eye irritation [Unknown]
  - Sneezing [Unknown]
  - Oropharyngeal pain [Unknown]
  - Eye pruritus [Unknown]
  - Eczema [Unknown]
  - Gastrooesophageal reflux disease [Unknown]

NARRATIVE: CASE EVENT DATE: 201808
